FAERS Safety Report 8926754 (Version 1)
Quarter: 2012Q4

REPORT INFORMATION
  Report Type: 
  Country: US (occurrence: US)
  Receive Date: 20121127
  Receipt Date: 20121127
  Transmission Date: 20130627
  Serious: No
  Sender: FDA-Public Use
  Company Number: US-009507513-1211USA010117

PATIENT
  Age: 66 Year
  Sex: Male

DRUGS (3)
  1. VICTRELIS [Suspect]
     Route: 048
  2. PEGASYS [Suspect]
  3. RIBAVIRIN (WARRICK) [Suspect]
     Route: 048

REACTIONS (2)
  - Arthralgia [Unknown]
  - Myalgia [Unknown]
